FAERS Safety Report 8138613 (Version 4)
Quarter: 2014Q3

REPORT INFORMATION
  Report Type: Spontaneous
  Country: US (occurrence: US)
  Receive Date: 20110915
  Receipt Date: 20140902
  Transmission Date: 20150326
  Serious: Yes (Hospitalization, Other)
  Sender: FDA-Public Use
  Company Number: US-ASTRAZENECA-2011SE53754

PATIENT
  Age: 66 Year
  Sex: Male

DRUGS (6)
  1. TOPROL XL [Interacting]
     Active Substance: METOPROLOL SUCCINATE
     Indication: CARDIAC DISORDER
     Route: 048
  2. MULTAQ [Interacting]
     Active Substance: DRONEDARONE
     Route: 065
  3. TOPROL XL [Suspect]
     Active Substance: METOPROLOL SUCCINATE
     Indication: CARDIAC DISORDER
     Route: 048
     Dates: start: 1999
  4. TOPROL XL [Interacting]
     Active Substance: METOPROLOL SUCCINATE
     Indication: CARDIAC DISORDER
     Route: 048
  5. BETAPACE [Concomitant]
     Active Substance: SOTALOL HYDROCHLORIDE
  6. TOPROL XL [Interacting]
     Active Substance: METOPROLOL SUCCINATE
     Indication: CARDIAC DISORDER
     Route: 048

REACTIONS (11)
  - Drug interaction [Unknown]
  - Drug effect decreased [Unknown]
  - Liver disorder [Unknown]
  - Condition aggravated [Unknown]
  - Heart rate increased [Unknown]
  - Tachycardia [Unknown]
  - Off label use [Recovered/Resolved]
  - Cardiac disorder [Unknown]
  - Off label use [Not Recovered/Not Resolved]
  - Renal disorder [Unknown]
  - Jaundice [Unknown]

NARRATIVE: CASE EVENT DATE: 2004
